FAERS Safety Report 14162143 (Version 1)
Quarter: 2017Q4

REPORT INFORMATION
  Report Type: Spontaneous
  Country: GB (occurrence: GB)
  Receive Date: 20171106
  Receipt Date: 20171106
  Transmission Date: 20180321
  Serious: Yes (Other)
  Sender: FDA-Public Use
  Company Number: PHHY2017GB162350

PATIENT
  Sex: Female

DRUGS (7)
  1. SODIUM CROMOGLYCATE [Suspect]
     Active Substance: CROMOLYN SODIUM
     Indication: SYSTEMIC MASTOCYTOSIS
     Route: 048
  2. OMEPRAZOLE. [Suspect]
     Active Substance: OMEPRAZOLE
     Indication: SYSTEMIC MASTOCYTOSIS
     Dosage: 40 MG, QD
     Route: 065
  3. SODIUM CLODRONATE [Suspect]
     Active Substance: CLODRONIC ACID
     Indication: SYSTEMIC MASTOCYTOSIS
     Dosage: 1040 MG, QD
     Route: 065
  4. PREDNISOLONE. [Suspect]
     Active Substance: PREDNISOLONE
     Indication: SYSTEMIC MASTOCYTOSIS
     Dosage: 10 MG, QD
     Route: 065
  5. CYCLIZINE [Suspect]
     Active Substance: CYCLIZINE
     Indication: SYSTEMIC MASTOCYTOSIS
     Dosage: 50 MG, TID
     Route: 065
  6. RANITIDINE. [Suspect]
     Active Substance: RANITIDINE
     Indication: SYSTEMIC MASTOCYTOSIS
     Dosage: 150 MG, BID
     Route: 065
  7. EPIPEN [Suspect]
     Active Substance: EPINEPHRINE
     Indication: SYSTEMIC MASTOCYTOSIS
     Dosage: UNK UNK, PRN
     Route: 065

REACTIONS (1)
  - Systemic mastocytosis [Unknown]
